FAERS Safety Report 25651915 (Version 2)
Quarter: 2025Q3

REPORT INFORMATION
  Report Type: Spontaneous
  Country: BR (occurrence: BR)
  Receive Date: 20250806
  Receipt Date: 20250816
  Transmission Date: 20251021
  Serious: Yes (Life-Threatening, Hospitalization)
  Sender: SERVIER
  Company Number: BR-SERVIER-S25011238

PATIENT

DRUGS (9)
  1. ONCASPAR [Suspect]
     Active Substance: PEGASPARGASE
     Indication: B-cell type acute leukaemia
     Route: 065
     Dates: start: 20250729
  2. VINCRISTINE [Suspect]
     Active Substance: VINCRISTINE
     Indication: B-cell type acute leukaemia
     Route: 065
  3. VORICONAZOLE [Concomitant]
     Active Substance: VORICONAZOLE
     Indication: Antifungal prophylaxis
     Dosage: 200 MG, BID
     Route: 065
  4. BACTRIM [Concomitant]
     Active Substance: SULFAMETHOXAZOLE\TRIMETHOPRIM
     Indication: Antibiotic prophylaxis
     Dosage: 7 ML, BID, 3 TIMES A WEEK (MONDAY, WEDNESDAY AND FRIDAY)
     Route: 065
  5. CARVEDILOL [Concomitant]
     Active Substance: CARVEDILOL
     Indication: Cardiomyopathy
     Dosage: 0.7 ML, BID
     Route: 065
  6. Biovit bioglucan [Concomitant]
     Indication: Vitamin supplementation
     Dosage: UNK, BID
     Route: 065
  7. ACETAMINOPHEN [Concomitant]
     Active Substance: ACETAMINOPHEN
     Indication: Premedication
     Dosage: UNK
     Route: 065
  8. HYDROCORTISONE [Concomitant]
     Active Substance: HYDROCORTISONE
     Indication: Premedication
     Route: 065
  9. DIPHENHYDRAMINE [Concomitant]
     Active Substance: DIPHENHYDRAMINE
     Indication: Premedication
     Route: 065

REACTIONS (6)
  - Pruritus [Recovered/Resolved]
  - Erythema [Recovered/Resolved]
  - Face oedema [Recovered/Resolved]
  - Urinary tract infection [Unknown]
  - Hospitalisation [Unknown]
  - Cardiac disorder [Unknown]

NARRATIVE: CASE EVENT DATE: 20250729
